FAERS Safety Report 19198631 (Version 3)
Quarter: 2021Q3

REPORT INFORMATION
  Report Type: Spontaneous
  Country: FR (occurrence: FR)
  Receive Date: 20210430
  Receipt Date: 20210709
  Transmission Date: 20211014
  Serious: Yes (Other)
  Sender: FDA-Public Use
  Company Number: FR-AUROBINDO-AUR-APL-2021-017454

PATIENT
  Sex: Female

DRUGS (2)
  1. BISOPROLOL FILM?COATED TABLETS [Suspect]
     Active Substance: BISOPROLOL
     Indication: POSTURAL ORTHOSTATIC TACHYCARDIA SYNDROME
     Dosage: UNK
     Route: 065
  2. PROPRANOLOL [Suspect]
     Active Substance: PROPRANOLOL HYDROCHLORIDE
     Indication: POSTURAL ORTHOSTATIC TACHYCARDIA SYNDROME
     Dosage: UNK
     Route: 065

REACTIONS (12)
  - Suffocation feeling [Unknown]
  - Bradycardia [Not Recovered/Not Resolved]
  - Headache [Unknown]
  - Medication error [Unknown]
  - Loss of consciousness [Unknown]
  - Dizziness [Unknown]
  - Tachycardia [Not Recovered/Not Resolved]
  - Raynaud^s phenomenon [Unknown]
  - Oxygen saturation decreased [Unknown]
  - Heart rate irregular [Unknown]
  - Product use in unapproved indication [Unknown]
  - Malaise [Unknown]
